FAERS Safety Report 7039721-3 (Version None)
Quarter: 2010Q4

REPORT INFORMATION
  Report Type: 
  Country: None (occurrence: None)
  Receive Date: 20101012
  Receipt Date: 20101005
  Transmission Date: 20110411
  Serious: Yes (Hospitalization, Congenital Anomaly)
  Sender: FDA-Public Use
  Company Number: US-AMGEN-KDC412080

PATIENT
  Sex: Female
  Weight: 2.58 kg

DRUGS (18)
  1. ENBREL [Suspect]
     Route: 064
     Dates: start: 20090701, end: 20090817
  2. PRENATAL VITAMINS [Concomitant]
     Route: 064
     Dates: start: 20090717, end: 20100410
  3. VITAMIN D3 [Concomitant]
     Route: 064
     Dates: start: 20090717, end: 20100101
  4. VITAMIN K TAB [Concomitant]
     Route: 064
     Dates: start: 20090717, end: 20090817
  5. FISH OIL [Concomitant]
     Route: 064
     Dates: start: 20090717, end: 20100404
  6. SELENIUM [Concomitant]
     Route: 064
     Dates: start: 20090717, end: 20090817
  7. SYNTHROID [Concomitant]
     Route: 064
     Dates: start: 20090717, end: 20100410
  8. PROGESTERONE [Concomitant]
     Route: 064
     Dates: start: 20090803, end: 20091005
  9. TYLENOL [Concomitant]
     Route: 064
     Dates: start: 20090714, end: 20100110
  10. ASPIRIN [Concomitant]
     Route: 064
     Dates: start: 20090803, end: 20090918
  11. CORTISONE [Concomitant]
     Route: 064
     Dates: start: 20091110, end: 20100410
  12. INFLUENZA VACCINE [Concomitant]
     Route: 064
     Dates: start: 20091102, end: 20091102
  13. CHOLINE [Concomitant]
     Route: 064
     Dates: start: 20091201, end: 20100410
  14. PERCOCET [Concomitant]
     Route: 064
     Dates: start: 20091224, end: 20100110
  15. AZITHROMYCIN [Concomitant]
     Route: 064
     Dates: start: 20100112, end: 20100116
  16. MUCINEX [Concomitant]
     Route: 064
     Dates: start: 20091201, end: 20100118
  17. INFLUENZA A (H1N1) MONOVALENT VACCINE [Concomitant]
     Route: 064
     Dates: start: 20091019, end: 20091019
  18. HYALURONIC ACID [Concomitant]
     Route: 064
     Dates: start: 20090717, end: 20091110

REACTIONS (4)
  - ATRIAL SEPTAL DEFECT [None]
  - CONGENITAL MITRAL VALVE INCOMPETENCE [None]
  - CYANOSIS [None]
  - TURNER'S SYNDROME [None]
